FAERS Safety Report 9821058 (Version 1)
Quarter: 2013Q4

REPORT INFORMATION
  Report Type: Spontaneous
  Country: US (occurrence: None)
  Receive Date: 20131028
  Receipt Date: 20131028
  Transmission Date: 20140711
  Serious: Yes (Other)
  Sender: FDA-Public Use
  Company Number: 2013US001696

PATIENT
  Age: 60 Year
  Sex: Female
  Weight: 149.9 kg

DRUGS (13)
  1. ICLUSIG (PONATINIB) TABLET, 45MG [Suspect]
     Indication: CHRONIC MYELOID LEUKAEMIA
     Route: 048
     Dates: start: 20130524, end: 20130605
  2. BENZTROPINE (BENZTROPINE MESILATE) [Concomitant]
  3. CYCLOBENZAPRINE (CYCLOBENZAPRINE) [Concomitant]
  4. STOOL SOFTENER (DOCUSATE SODIUM) [Concomitant]
  5. ALBUTEROL (ALBUTEROL) [Concomitant]
  6. SPIRIVA (TIOTROPIUM BROMIDE) (TIOTROPIUM BROMIDE) [Concomitant]
  7. DILTIAZEM (DILTIAZEM) [Concomitant]
  8. ASA (ASA) [Concomitant]
  9. OXYCODONE (OXYCODONE) [Concomitant]
  10. SYMBICORT (BUDESONIDE, FORMOTEROL FUMARATE) [Concomitant]
  11. FUROSEMIDE (FUROSEMIDE) [Concomitant]
  12. HYDROCODONE (HYDROCODONE) [Concomitant]
  13. PROAIR (PROCATEROL HYDROCHLORIDE) [Concomitant]

REACTIONS (3)
  - Headache [None]
  - Hypertension [None]
  - Rash pruritic [None]
